FAERS Safety Report 20725557 (Version 1)
Quarter: 2022Q2

REPORT INFORMATION
  Report Type: Spontaneous
  Country: US (occurrence: US)
  Receive Date: 20220419
  Receipt Date: 20220419
  Transmission Date: 20220721
  Serious: No
  Sender: FDA-Public Use
  Company Number: US-PFIZER INC-2021868741

PATIENT

DRUGS (1)
  1. ZARONTIN [Suspect]
     Active Substance: ETHOSUXIMIDE
     Dosage: 250 MG

REACTIONS (3)
  - Abdominal discomfort [Unknown]
  - Poor quality product administered [Unknown]
  - Product storage error [Unknown]
